FAERS Safety Report 17009484 (Version 1)
Quarter: 2019Q4

REPORT INFORMATION
  Report Type: Spontaneous
  Country: US (occurrence: US)
  Receive Date: 20191108
  Receipt Date: 20191108
  Transmission Date: 20200122
  Serious: No
  Sender: FDA-Public Use
  Company Number: US-PFIZER INC-2018049445

PATIENT
  Age: 64 Year
  Sex: Female

DRUGS (8)
  1. METFORMIN [Concomitant]
     Active Substance: METFORMIN HYDROCHLORIDE
  2. METOPROLOL. [Concomitant]
     Active Substance: METOPROLOL
  3. PARAPLATIN [Concomitant]
     Active Substance: CARBOPLATIN
     Indication: OVARIAN CANCER
  4. LISINOPRIL. [Concomitant]
     Active Substance: LISINOPRIL
  5. TAXOTERE [Suspect]
     Active Substance: DOCETAXEL
     Indication: OVARIAN CANCER
     Dosage: UNK UNK, CYCLIC, EVERY THREE WEEKS
     Dates: start: 20101109, end: 20110414
  6. OMEPRAZOL [Concomitant]
     Active Substance: OMEPRAZOLE
  7. DOCETAXEL. [Suspect]
     Active Substance: DOCETAXEL
     Indication: OVARIAN CANCER
     Dosage: UNK UNK, CYCLIC, EVERY THREE WEEKS
     Dates: start: 20101109, end: 20110414
  8. ASPIRIN (E.C.) [Concomitant]
     Active Substance: ASPIRIN

REACTIONS (3)
  - Madarosis [Not Recovered/Not Resolved]
  - Alopecia [Not Recovered/Not Resolved]
  - Hair disorder [Not Recovered/Not Resolved]

NARRATIVE: CASE EVENT DATE: 201011
